FAERS Safety Report 7820142 (Version 3)
Quarter: 2015Q4

REPORT INFORMATION
  Report Type: Spontaneous
  Country: US (occurrence: US)
  Receive Date: 20110221
  Receipt Date: 20151112
  Transmission Date: 20160305
  Serious: Yes (Hospitalization, Other)
  Sender: FDA-Public Use
  Company Number: US-ROCHE-735451

PATIENT
  Sex: Female
  Weight: 68 kg

DRUGS (2)
  1. ACCUTANE [Suspect]
     Active Substance: ISOTRETINOIN
     Indication: ACNE
     Route: 065
     Dates: start: 1983, end: 1984
  2. ACCUTANE [Suspect]
     Active Substance: ISOTRETINOIN
     Route: 065
     Dates: start: 19850101, end: 19860101

REACTIONS (9)
  - Colitis ulcerative [Unknown]
  - Intestinal obstruction [Unknown]
  - Nausea [Unknown]
  - Abdominal pain [Unknown]
  - Crohn^s disease [Unknown]
  - Inflammatory bowel disease [Unknown]
  - Irritable bowel syndrome [Unknown]
  - Rectal haemorrhage [Unknown]
  - Depression [Unknown]

NARRATIVE: CASE EVENT DATE: 1991
